FAERS Safety Report 6697560-7 (Version None)
Quarter: 2010Q2

REPORT INFORMATION
  Report Type: 
  Country: None (occurrence: None)
  Receive Date: 20100426
  Receipt Date: 20100330
  Transmission Date: 20101027
  Serious: No
  Sender: FDA-Public Use
  Company Number: US-ABBOTT-10P-163-0635551-00

PATIENT
  Sex: Female

DRUGS (1)
  1. AZMACORT [Suspect]
     Indication: ASTHMA
     Dates: end: 20100101

REACTIONS (1)
  - ASTHMA [None]
